FAERS Safety Report 7381935-7 (Version None)
Quarter: 2011Q1

REPORT INFORMATION
  Report Type: 
  Country: None (occurrence: None)
  Receive Date: 20110324
  Receipt Date: 20110324
  Transmission Date: 20110831
  Serious: Yes (Life-Threatening, Other)
  Sender: FDA-Public Use
  Company Number: None

PATIENT
  Age: 26 Year
  Sex: Female
  Weight: 63.5036 kg

DRUGS (2)
  1. CYMBALTA [Suspect]
     Indication: FIBROMYALGIA
     Dosage: 30MG 1X/DAY PO
     Route: 048
     Dates: start: 20060110, end: 20110323
  2. CYMBALTA [Suspect]
     Indication: DEPRESSION
     Dosage: 30MG 1X/DAY PO
     Route: 048
     Dates: start: 20060110, end: 20110323

REACTIONS (11)
  - PARAESTHESIA [None]
  - SUICIDAL IDEATION [None]
  - QUALITY OF LIFE DECREASED [None]
  - DEPRESSION [None]
  - DRUG WITHDRAWAL SYNDROME [None]
  - NAUSEA [None]
  - DRUG INEFFECTIVE [None]
  - HEADACHE [None]
  - VOMITING [None]
  - FEELING ABNORMAL [None]
  - DRUG DEPENDENCE [None]
